FAERS Safety Report 7309915-8 (Version None)
Quarter: 2011Q1

REPORT INFORMATION
  Report Type: 
  Country: None (occurrence: None)
  Receive Date: 20110224
  Receipt Date: 20110214
  Transmission Date: 20110831
  Serious: Yes (Hospitalization, Other)
  Sender: FDA-Public Use
  Company Number: US-TEVA-267416USA

PATIENT
  Age: 46 Year
  Sex: Female

DRUGS (1)
  1. HYDROCHLOROTHIAZIDE [Suspect]
     Indication: HYPERTENSION
     Route: 048

REACTIONS (2)
  - SHOCK [None]
  - NON-CARDIOGENIC PULMONARY OEDEMA [None]
